FAERS Safety Report 24455571 (Version 2)
Quarter: 2024Q4

REPORT INFORMATION
  Report Type: Spontaneous
  Country: CN (occurrence: CN)
  Receive Date: 20241017
  Receipt Date: 20241018
  Transmission Date: 20250115
  Serious: No
  Sender: ROCHE
  Company Number: CN-ROCHE-3486657

PATIENT

DRUGS (1)
  1. MABTHERA [Suspect]
     Active Substance: RITUXIMAB
     Indication: Nephrotic syndrome
     Route: 065

REACTIONS (4)
  - Weight decreased [Unknown]
  - Decreased appetite [Unknown]
  - Insomnia [Unknown]
  - Off label use [Unknown]
